FAERS Safety Report 7794199-7 (Version None)
Quarter: 2011Q4

REPORT INFORMATION
  Report Type: 
  Country: None (occurrence: None)
  Receive Date: 20111004
  Receipt Date: 20110928
  Transmission Date: 20120403
  Serious: Yes (Death, Hospitalization)
  Sender: FDA-Public Use
  Company Number: US-AMGEN-USASP2011038226

PATIENT
  Age: 72 Year
  Sex: Male

DRUGS (1)
  1. NPLATE [Suspect]
     Indication: IDIOPATHIC THROMBOCYTOPENIC PURPURA
     Dosage: UNK
     Dates: start: 20110114, end: 20110114

REACTIONS (3)
  - SEPSIS [None]
  - STREPTOCOCCAL INFECTION [None]
  - NEOPLASM MALIGNANT [None]
